FAERS Safety Report 12458872 (Version 1)
Quarter: 2016Q2

REPORT INFORMATION
  Report Type: Other
  Country: CA (occurrence: CA)
  Receive Date: 20160613
  Receipt Date: 20160613
  Transmission Date: 20160815
  Serious: Yes (Other)
  Sender: FDA-Public Use
  Company Number: CA-SHIRE-CA201606805

PATIENT
  Sex: Female
  Weight: 61.22 kg

DRUGS (1)
  1. FIRAZYR [Suspect]
     Active Substance: ICATIBANT ACETATE
     Indication: HEREDITARY ANGIOEDEMA
     Dosage: 30 MG, AS REQ^D
     Route: 058
     Dates: start: 20160322

REACTIONS (4)
  - Blood potassium decreased [Unknown]
  - Injection site pain [Unknown]
  - Paraesthesia oral [Unknown]
  - Swollen tongue [Unknown]
